FAERS Safety Report 14471965 (Version 5)
Quarter: 2019Q1

REPORT INFORMATION
  Report Type: Report from Study
  Country: DE (occurrence: DE)
  Receive Date: 20180131
  Receipt Date: 20190318
  Transmission Date: 20190417
  Serious: Yes (Hospitalization, Other)
  Sender: FDA-Public Use
  Company Number: DE-GLAXOSMITHKLINE-DE2018012549

PATIENT
  Age: 68 Year
  Sex: Female
  Weight: 53 kg

DRUGS (18)
  1. METOPROLOL. [Concomitant]
     Active Substance: METOPROLOL
     Indication: PRODUCT USED FOR UNKNOWN INDICATION
     Dosage: UNK
     Route: 065
     Dates: start: 201001
  2. TORSEMIDE. [Concomitant]
     Active Substance: TORSEMIDE
     Indication: PRODUCT USED FOR UNKNOWN INDICATION
     Dosage: 3 DF, QD
     Route: 065
     Dates: start: 20100101
  3. ZOMETA [Concomitant]
     Active Substance: ZOLEDRONIC ACID
     Indication: BREAST CANCER
     Dosage: 3.3 G, UNK
     Route: 065
     Dates: start: 20110825, end: 20110825
  4. IBUPROFEN. [Concomitant]
     Active Substance: IBUPROFEN
     Indication: PRODUCT USED FOR UNKNOWN INDICATION
     Dosage: UNK
     Route: 065
     Dates: start: 20110831
  5. RANITIDIN [Suspect]
     Active Substance: RANITIDINE HYDROCHLORIDE
     Indication: BREAST CANCER METASTATIC
     Dosage: 50 MG, UNK
     Route: 042
     Dates: start: 20110825
  6. XELODA [Suspect]
     Active Substance: CAPECITABINE
     Indication: BREAST CANCER
     Dosage: 3000 MG, UNK
     Route: 065
     Dates: start: 20111019, end: 20111206
  7. HYDROCHLOROTHIAZIDE. [Concomitant]
     Active Substance: HYDROCHLOROTHIAZIDE
     Indication: PRODUCT USED FOR UNKNOWN INDICATION
     Dosage: UNK
     Route: 065
     Dates: start: 201001
  8. XELODA [Suspect]
     Active Substance: CAPECITABINE
     Dosage: 2300 MG/M2, UNK
     Route: 065
     Dates: start: 20111109, end: 20111206
  9. XELODA [Suspect]
     Active Substance: CAPECITABINE
     Dosage: 1300 MG/M2, UNK
     Route: 065
     Dates: start: 20111206
  10. PACLITAXEL. [Suspect]
     Active Substance: PACLITAXEL
     Indication: BREAST CANCER METASTATIC
     Dosage: 80 MG/M2, UNK
     Route: 042
     Dates: start: 20110825, end: 20110922
  11. ARIXTRA [Concomitant]
     Active Substance: FONDAPARINUX SODIUM
     Indication: THROMBOSIS PROPHYLAXIS
     Dosage: UNK
     Route: 065
     Dates: start: 20111219
  12. DEXAMETHASONE. [Suspect]
     Active Substance: DEXAMETHASONE
     Indication: BREAST CANCER METASTATIC
     Dosage: 8 MG, UNK
     Route: 042
     Dates: start: 20110825
  13. AVASTIN [Suspect]
     Active Substance: BEVACIZUMAB
     Indication: BREAST CANCER
     Dosage: 530 MG, UNK
     Route: 042
     Dates: start: 20110825, end: 20111205
  14. ZOLEDRONIC ACID [Suspect]
     Active Substance: ZOLEDRONIC ACID
     Indication: BREAST CANCER METASTATIC
     Dosage: 3.3 MG, UNK
     Route: 042
     Dates: start: 20110825, end: 20110825
  15. DENOSUMAB [Concomitant]
     Active Substance: DENOSUMAB
     Dosage: 60 MG, UNK
     Route: 065
     Dates: start: 20101020
  16. TAVEGIL [Suspect]
     Active Substance: CLEMASTINE FUMARATE
     Indication: BREAST CANCER METASTATIC
     Dosage: 2 MG, UNK
     Route: 042
     Dates: start: 20110825
  17. GRANISETRON [Suspect]
     Active Substance: GRANISETRON
     Indication: BREAST CANCER METASTATIC
     Dosage: 1 MG, UNK
     Route: 042
     Dates: start: 20110825
  18. DENOSUMAB [Concomitant]
     Active Substance: DENOSUMAB
     Indication: BREAST CANCER
     Dosage: 120 MG, UNK
     Route: 065
     Dates: start: 20120116

REACTIONS (15)
  - Dyspnoea [Recovered/Resolved]
  - General physical health deterioration [Recovered/Resolved]
  - Hypertension [Recovering/Resolving]
  - Tooth erosion [Recovered/Resolved]
  - Vomiting [Recovered/Resolved]
  - Periodontitis [Not Recovered/Not Resolved]
  - Thrombosis [Not Recovered/Not Resolved]
  - Pulpitis dental [Recovered/Resolved]
  - Weight decreased [Recovered/Resolved]
  - Dysphagia [Recovered/Resolved]
  - Mucosal inflammation [Recovered/Resolved]
  - Diarrhoea [Recovered/Resolved]
  - Sensory disturbance [Recovered/Resolved]
  - Venous thrombosis limb [Recovering/Resolving]
  - Nausea [Recovered/Resolved]

NARRATIVE: CASE EVENT DATE: 20110827
